FAERS Safety Report 7541746-6 (Version None)
Quarter: 2011Q2

REPORT INFORMATION
  Report Type: 
  Country: None (occurrence: None)
  Receive Date: 20110613
  Receipt Date: 20110531
  Transmission Date: 20111010
  Serious: Yes (Hospitalization)
  Sender: FDA-Public Use
  Company Number: US-ELI_LILLY_AND_COMPANY-US201103003331

PATIENT
  Age: 58 Year
  Sex: Female
  Weight: 52.608 kg

DRUGS (1)
  1. FORTEO [Suspect]
     Dosage: UNK, UNKNOWN
     Route: 065

REACTIONS (4)
  - FOOT OPERATION [None]
  - INTERVERTEBRAL DISC DEGENERATION [None]
  - SHOULDER OPERATION [None]
  - SURGERY [None]
